FAERS Safety Report 11909373 (Version 2)
Quarter: 2016Q4

REPORT INFORMATION
  Report Type: Spontaneous
  Country: US (occurrence: US)
  Receive Date: 20160112
  Receipt Date: 20161012
  Transmission Date: 20170206
  Serious: No
  Sender: FDA-Public Use
  Company Number: US-TEVA-604833USA

PATIENT
  Sex: Female
  Weight: 74.91 kg

DRUGS (5)
  1. ZECUITY [Suspect]
     Active Substance: SUMATRIPTAN SUCCINATE
     Indication: MIGRAINE
     Route: 062
     Dates: start: 20150924
  2. LEXAPRO [Concomitant]
     Active Substance: ESCITALOPRAM OXALATE
  3. TROKENDI [Concomitant]
     Active Substance: TOPIRAMATE
  4. VITAMIN D [Concomitant]
     Active Substance: CHOLECALCIFEROL
  5. BENZONATATE. [Concomitant]
     Active Substance: BENZONATATE

REACTIONS (6)
  - Product leakage [Unknown]
  - Application site discolouration [Recovered/Resolved]
  - Application site erythema [Recovered/Resolved]
  - Device battery issue [Unknown]
  - Product adhesion issue [Unknown]
  - Application site vesicles [Recovered/Resolved]
